FAERS Safety Report 20404047 (Version 1)
Quarter: 2022Q1

REPORT INFORMATION
  Report Type: Report from Study
  Country: DE (occurrence: None)
  Receive Date: 20220131
  Receipt Date: 20220131
  Transmission Date: 20220423
  Serious: Yes (Hospitalization)
  Sender: FDA-Public Use
  Company Number: DE-ROCHE-2479678

PATIENT
  Age: 44 Year
  Sex: Male
  Weight: 115 kg

DRUGS (4)
  1. TOCILIZUMAB [Suspect]
     Active Substance: TOCILIZUMAB
     Indication: Familial mediterranean fever
     Dosage: DATE OF LAST DOSE ADMINISTERED BEFORE AE 2 ONSET: 10/DEC/2019
     Route: 042
     Dates: start: 20190718, end: 20190718
  2. CIPROFLOXACIN [Concomitant]
     Active Substance: CIPROFLOXACIN
     Dates: start: 20190712, end: 20190817
  3. METRONIDAZOLE [Concomitant]
     Active Substance: METRONIDAZOLE
     Indication: Enteritis
     Dates: start: 20190812, end: 20190817
  4. COLCHICINE [Concomitant]
     Active Substance: COLCHICINE
     Indication: Familial mediterranean fever
     Dates: start: 1992

REACTIONS (3)
  - Gastrointestinal inflammation [Recovered/Resolved]
  - Familial mediterranean fever [Recovered/Resolved]
  - Peritonitis [Recovered/Resolved]

NARRATIVE: CASE EVENT DATE: 20190812
